FAERS Safety Report 4583848-2 (Version None)
Quarter: 2005Q1

REPORT INFORMATION
  Report Type: 
  Country: None (occurrence: None)
  Receive Date: 20050216
  Receipt Date: 20050204
  Transmission Date: 20050727
  Serious: Yes (Other)
  Sender: FDA-Public Use
  Company Number: JP-JNJFOC-20050106956

PATIENT
  Age: 65 Year
  Sex: Male

DRUGS (7)
  1. ITRIZOLE [Suspect]
     Indication: ONYCHOMYCOSIS
     Route: 049
  2. AMLODIPINE BESYLATE [Concomitant]
  3. VALSARTAN [Concomitant]
     Route: 049
  4. ATENOLOL [Concomitant]
     Route: 049
  5. CELIPROLOL HYDROCHLORIDE [Concomitant]
     Route: 049
  6. MANIDIPINE HYDROCHLORIDE [Concomitant]
     Route: 049
  7. FURSULTIAMINE [Concomitant]
     Route: 049

REACTIONS (4)
  - DRUG EFFECT DECREASED [None]
  - DYSPNOEA [None]
  - GENERALISED OEDEMA [None]
  - WEIGHT INCREASED [None]
